FAERS Safety Report 5243295-7 (Version None)
Quarter: 2007Q1

REPORT INFORMATION
  Report Type: 
  Country: None (occurrence: None)
  Receive Date: 20070213
  Receipt Date: 20070202
  Transmission Date: 20070707
  Serious: Yes (Hospitalization)
  Sender: FDA-Public Use
  Company Number: GXKR2007JP01115

PATIENT
  Age: 18 Year
  Sex: Male

DRUGS (7)
  1. FLUVOXAMINE MALEATE [Suspect]
     Indication: DEPRESSED MOOD
     Dosage: 50 MG, QD
  2. PAROXETINE HCL [Suspect]
     Indication: PANIC DISORDER
     Dosage: 10 MG, QD
  3. DANTROLENE SODIUM [Concomitant]
  4. LORNOXICAM (LORNOXICAM) [Concomitant]
  5. CLONAZEPAM [Concomitant]
  6. BROTIZOLAM (BROTIZOLAM) [Concomitant]
  7. ETIZOLAM (ETIZOLAM) [Concomitant]

REACTIONS (6)
  - ANGER [None]
  - ANXIETY [None]
  - DRUG INTERACTION [None]
  - PANIC DISORDER [None]
  - SEROTONIN SYNDROME [None]
  - SUICIDE ATTEMPT [None]
